FAERS Safety Report 9617302 (Version 1)
Quarter: 2013Q4

REPORT INFORMATION
  Report Type: Spontaneous
  Country: US (occurrence: None)
  Receive Date: 20131009
  Receipt Date: 20131009
  Transmission Date: 20140711
  Serious: Yes (Death)
  Sender: FDA-Public Use
  Company Number: KAD201310-001296

PATIENT
  Sex: 0

DRUGS (1)
  1. INTERFERON ALFACON-1 [Suspect]
     Indication: CHRONIC HEPATITIS C

REACTIONS (1)
  - Hepatocellular carcinoma [None]
